FAERS Safety Report 5174693-8 (Version None)
Quarter: 2006Q4

REPORT INFORMATION
  Report Type: 
  Country: None (occurrence: None)
  Receive Date: 20061214
  Receipt Date: 20060613
  Transmission Date: 20070319
  Serious: No
  Sender: FDA-Public Use
  Company Number: US-AMGEN-KDL182755

PATIENT
  Sex: Female

DRUGS (2)
  1. ENBREL [Suspect]
     Indication: DRUG USE FOR UNKNOWN INDICATION
     Route: 058
     Dates: start: 20020101
  2. METHOTREXATE [Concomitant]
     Route: 048
     Dates: start: 20020301

REACTIONS (8)
  - CHILLS [None]
  - GINGIVITIS [None]
  - HYPERHIDROSIS [None]
  - JOINT SWELLING [None]
  - MYALGIA [None]
  - NECK PAIN [None]
  - NIGHT SWEATS [None]
  - PHARYNGOLARYNGEAL PAIN [None]
